FAERS Safety Report 19539451 (Version 4)
Quarter: 2021Q3

REPORT INFORMATION
  Report Type: Report from Study
  Country: CN (occurrence: CN)
  Receive Date: 20210714
  Receipt Date: 20210913
  Transmission Date: 20211014
  Serious: Yes (Life-Threatening, Hospitalization)
  Sender: FDA-Public Use
  Company Number: CN-JIANGSU HENGRUI MEDICINE CO., LTD.-2113804

PATIENT
  Age: 52 Year
  Sex: Female
  Weight: 52 kg

DRUGS (5)
  1. JINSHUIBAO CAPSULE [Concomitant]
     Route: 048
     Dates: start: 20210630, end: 20210815
  2. PYROTINIB MALEATE. [Suspect]
     Active Substance: PYROTINIB MALEATE
     Route: 048
     Dates: start: 20210319, end: 20210707
  3. TRASTUZUMAB INJECTION [Suspect]
     Active Substance: TRASTUZUMAB
     Route: 041
     Dates: start: 20210319, end: 20210630
  4. FEBUXOSTAT. [Concomitant]
     Active Substance: FEBUXOSTAT
     Route: 048
     Dates: start: 20210630
  5. DOCETAXEL INJECTION USP, 20 MG/1 ML, 80 MG/4 ML, AND 160 MG/8 ML (20 M [Suspect]
     Active Substance: DOCETAXEL
     Indication: BREAST CANCER
     Route: 041
     Dates: start: 20210319, end: 20210630

REACTIONS (2)
  - Diarrhoea [Not Recovered/Not Resolved]
  - Hypokalaemia [Not Recovered/Not Resolved]

NARRATIVE: CASE EVENT DATE: 20210708
